FAERS Safety Report 15306685 (Version 2)
Quarter: 2018Q4

REPORT INFORMATION
  Report Type: Spontaneous
  Country: US (occurrence: US)
  Receive Date: 20180822
  Receipt Date: 20181029
  Transmission Date: 20190204
  Serious: Yes (Other)
  Sender: FDA-Public Use
  Company Number: US-FERRINGPH-2018FE04507

PATIENT

DRUGS (4)
  1. MULTIVITAMIN                       /00097801/ [Concomitant]
     Active Substance: VITAMINS
     Indication: PRODUCT USED FOR UNKNOWN INDICATION
     Route: 065
  2. LISINOPRIL. [Concomitant]
     Active Substance: LISINOPRIL
     Indication: PRODUCT USED FOR UNKNOWN INDICATION
     Route: 065
  3. CLENPIQ [Suspect]
     Active Substance: ANHYDROUS CITRIC ACID\MAGNESIUM OXIDE\SODIUM PICOSULFATE
     Indication: BOWEL PREPARATION
     Dosage: 2 BOTTLES, ONCE/SINGLE
     Route: 048
     Dates: start: 20180514, end: 20180515
  4. CALCIUM [Concomitant]
     Active Substance: CALCIUM
     Indication: PRODUCT USED FOR UNKNOWN INDICATION
     Dosage: 2 TABLETS
     Route: 065

REACTIONS (4)
  - Diarrhoea [Not Recovered/Not Resolved]
  - Weight decreased [Recovered/Resolved]
  - Inappropriate schedule of product administration [Unknown]
  - Thyroid disorder [Not Recovered/Not Resolved]

NARRATIVE: CASE EVENT DATE: 20180514
